FAERS Safety Report 8544686-9 (Version None)
Quarter: 2012Q3

REPORT INFORMATION
  Report Type: 
  Country: None (occurrence: None)
  Receive Date: 20120727
  Receipt Date: 20120724
  Transmission Date: 20120928
  Serious: Yes (Other)
  Sender: FDA-Public Use
  Company Number: US-GLAXOSMITHKLINE-A0986510A

PATIENT
  Age: 20 Year
  Sex: Male

DRUGS (1)
  1. NICORETTE [Suspect]
     Indication: SMOKING CESSATION THERAPY
     Dosage: 2GUM CUMULATIVE DOSE
     Route: 002

REACTIONS (5)
  - DRUG HYPERSENSITIVITY [None]
  - LIP SWELLING [None]
  - OBSTRUCTIVE AIRWAYS DISORDER [None]
  - HYPERSENSITIVITY [None]
  - PHARYNGEAL OEDEMA [None]
